FAERS Safety Report 7135021-1 (Version None)
Quarter: 2010Q4

REPORT INFORMATION
  Report Type: 
  Country: None (occurrence: None)
  Receive Date: 20101203
  Receipt Date: 20101130
  Transmission Date: 20110411
  Serious: Yes (Hospitalization, Disabling)
  Sender: FDA-Public Use
  Company Number: FR-MERCK-0909FRA00038

PATIENT
  Age: 73 Year
  Sex: Female

DRUGS (5)
  1. FOSAMAX PLUS D [Suspect]
     Indication: OSTEOPOROSIS
     Route: 048
     Dates: start: 20060401, end: 20090701
  2. OMEPRAZOLE [Concomitant]
     Route: 048
  3. DOMPERIDONE [Concomitant]
     Route: 048
  4. ROSUVASTATIN CALCIUM [Concomitant]
     Indication: HYPERCHOLESTEROLAEMIA
     Route: 048
  5. NAFTAZONE [Concomitant]
     Route: 048

REACTIONS (1)
  - OSTEONECROSIS OF JAW [None]
